FAERS Safety Report 6804111-2 (Version None)
Quarter: 2010Q2

REPORT INFORMATION
  Report Type: 
  Country: None (occurrence: None)
  Receive Date: 20100628
  Receipt Date: 20070515
  Transmission Date: 20101027
  Serious: No
  Sender: FDA-Public Use
  Company Number: US-PFIZER INC-2006155715

PATIENT
  Sex: Female
  Weight: 68.04 kg

DRUGS (4)
  1. XALATAN [Suspect]
     Indication: GLAUCOMA
     Route: 047
     Dates: start: 20061213, end: 20070205
  2. CYCLOSPORINE [Concomitant]
     Indication: DRY EYE
     Dosage: 1 EVERY NA DAYS
     Route: 031
  3. LIPITOR [Concomitant]
  4. ACTONEL [Concomitant]
     Indication: BONE DENSITY DECREASED

REACTIONS (8)
  - EYE IRRITATION [None]
  - EYELID DISORDER [None]
  - EYELID MARGIN CRUSTING [None]
  - EYELID OEDEMA [None]
  - EYELIDS PRURITUS [None]
  - HYPERSENSITIVITY [None]
  - LACRIMATION INCREASED [None]
  - OCULAR HYPERAEMIA [None]
